FAERS Safety Report 9203958 (Version 3)
Quarter: 2013Q2

REPORT INFORMATION
  Report Type: Spontaneous
  Country: US (occurrence: US)
  Receive Date: 20130402
  Receipt Date: 20130503
  Transmission Date: 20140414
  Serious: No
  Sender: FDA-Public Use
  Company Number: US-VERTEX PHARMACEUTICALS INC.-2013-004273

PATIENT
  Age: 62 Year
  Sex: Male
  Weight: 95 kg

DRUGS (4)
  1. INCIVEK [Suspect]
     Indication: HEPATITIS C
     Dosage: 750 MG, TID
     Route: 048
     Dates: start: 20130318, end: 20130424
  2. COPEGUS [Suspect]
     Indication: HEPATITIS C
     Dosage: 3 DF, BID
     Dates: start: 20130318, end: 20130424
  3. PEGASYS [Suspect]
     Indication: HEPATITIS C
     Dosage: 180 ?G, QW
     Dates: start: 20130318
  4. PEGASYS [Suspect]
     Dosage: 130 ?G, QW
     Route: 058

REACTIONS (12)
  - Blood count abnormal [Unknown]
  - Blood cholesterol decreased [Not Recovered/Not Resolved]
  - Dyspnoea [Not Recovered/Not Resolved]
  - Influenza like illness [Not Recovered/Not Resolved]
  - Dry mouth [Recovered/Resolved]
  - Thirst [Recovered/Resolved]
  - Chills [Not Recovered/Not Resolved]
  - Decreased appetite [Not Recovered/Not Resolved]
  - Fatigue [Not Recovered/Not Resolved]
  - Asthenia [Not Recovered/Not Resolved]
  - Blood potassium decreased [Unknown]
  - Anorectal discomfort [Not Recovered/Not Resolved]
